FAERS Safety Report 5266568-0 (Version None)
Quarter: 2007Q1

REPORT INFORMATION
  Report Type: 
  Country: None (occurrence: None)
  Receive Date: 20070315
  Receipt Date: 20070306
  Transmission Date: 20070707
  Serious: Yes (Other)
  Sender: FDA-Public Use
  Company Number: BR-PFIZER INC-2007018342

PATIENT
  Sex: Female

DRUGS (4)
  1. LIPITOR [Suspect]
     Indication: DYSLIPIDAEMIA
     Route: 048
  2. FOSAMAX [Concomitant]
     Route: 048
  3. EVISTA [Concomitant]
     Route: 048
  4. EUTHYROX [Concomitant]
     Route: 048

REACTIONS (1)
  - EYE DISORDER [None]
